FAERS Safety Report 7763093-X (Version None)
Quarter: 2011Q3

REPORT INFORMATION
  Report Type: 
  Country: None (occurrence: None)
  Receive Date: 20110920
  Receipt Date: 20110225
  Transmission Date: 20111222
  Serious: No
  Sender: FDA-Public Use
  Company Number: US-BAUSCH-2011BL001211

PATIENT
  Sex: Female

DRUGS (3)
  1. ERYTHROCIN 1% [Suspect]
     Indication: ERYTHEMA OF EYELID
     Route: 047
     Dates: start: 20110225
  2. ERYTHROCIN 1% [Suspect]
     Indication: EYELID DISORDER
     Route: 047
     Dates: start: 20110225
  3. ERYTHROCIN 1% [Suspect]
     Indication: OFF LABEL USE
     Route: 047
     Dates: start: 20110225

REACTIONS (3)
  - ERYTHEMA OF EYELID [None]
  - LACRIMATION INCREASED [None]
  - CONDITION AGGRAVATED [None]
